FAERS Safety Report 20942578 (Version 1)
Quarter: 2022Q2

REPORT INFORMATION
  Report Type: Spontaneous
  Country: FR (occurrence: FR)
  Receive Date: 20220610
  Receipt Date: 20220610
  Transmission Date: 20220721
  Serious: Yes (Other)
  Sender: FDA-Public Use
  Company Number: FR-ABBVIE-22K-056-4428178-00

PATIENT
  Age: 30 Year
  Sex: Female

DRUGS (2)
  1. HUMIRA [Suspect]
     Active Substance: ADALIMUMAB
     Indication: Colitis ulcerative
     Route: 058
  2. HUMIRA [Suspect]
     Active Substance: ADALIMUMAB
     Route: 058

REACTIONS (10)
  - Mass [Unknown]
  - Hyperaesthesia eye [Unknown]
  - Sarcoma [Unknown]
  - Abnormal sensation in eye [Unknown]
  - Facial discomfort [Unknown]
  - Exophthalmos [Unknown]
  - Gastrointestinal disorder [Not Recovered/Not Resolved]
  - Malaise [Unknown]
  - Migraine [Unknown]
  - Oral discomfort [Unknown]
